FAERS Safety Report 17597573 (Version 2)
Quarter: 2020Q2

REPORT INFORMATION
  Report Type: Spontaneous
  Country: US (occurrence: US)
  Receive Date: 20200330
  Receipt Date: 20200403
  Transmission Date: 20200713
  Serious: Yes (Other)
  Sender: FDA-Public Use
  Company Number: US-SA-2020SA076003

PATIENT
  Age: 85 Year
  Sex: Male

DRUGS (1)
  1. LIBTAYO [Suspect]
     Active Substance: CEMIPLIMAB-RWLC
     Indication: SQUAMOUS CELL CARCINOMA OF HEAD AND NECK
     Dosage: 1 DF
     Route: 065
     Dates: start: 20200228, end: 20200228

REACTIONS (2)
  - Pemphigoid [Recovering/Resolving]
  - Dermatitis bullous [Unknown]

NARRATIVE: CASE EVENT DATE: 202003
